FAERS Safety Report 11833886 (Version 2)
Quarter: 2016Q1

REPORT INFORMATION
  Report Type: Spontaneous
  Country: US (occurrence: US)
  Receive Date: 20151214
  Receipt Date: 20160203
  Transmission Date: 20160525
  Serious: Yes (Other)
  Sender: FDA-Public Use
  Company Number: US-BAYER-2015-484635

PATIENT
  Age: 45 Year
  Sex: Female
  Weight: 68.27 kg

DRUGS (1)
  1. AFRIN ORIGINAL [Suspect]
     Active Substance: OXYMETAZOLINE HYDROCHLORIDE
     Indication: DYSPNOEA
     Dosage: SPRAYS EACH NOSTRIL 2-3 TIMES, FREQUENCY OF USE WAS UNSPECIFIED
     Route: 045
     Dates: start: 2012

REACTIONS (1)
  - Drug dependence [None]

NARRATIVE: CASE EVENT DATE: 2012
